FAERS Safety Report 23014618 (Version 2)
Quarter: 2023Q4

REPORT INFORMATION
  Report Type: Spontaneous
  Country: FR (occurrence: None)
  Receive Date: 20231002
  Receipt Date: 20231023
  Transmission Date: 20240110
  Serious: Yes (Life-Threatening)
  Sender: FDA-Public Use
  Company Number: 2023A222929

PATIENT
  Age: 64 Year
  Sex: Female

DRUGS (1)
  1. SYMBICORT [Suspect]
     Active Substance: BUDESONIDE\FORMOTEROL FUMARATE DIHYDRATE
     Indication: Asthma
     Dosage: 400 UG, TWO TIMES A DAY
     Route: 055
     Dates: start: 2012

REACTIONS (4)
  - Asthmatic crisis [Unknown]
  - Asthma [Unknown]
  - Device delivery system issue [Unknown]
  - Incorrect dose administered by device [Unknown]
